FAERS Safety Report 8635628 (Version 4)
Quarter: 2012Q4

REPORT INFORMATION
  Report Type: 
  Country: JP (occurrence: JP)
  Receive Date: 20120626
  Receipt Date: 20120925
  Transmission Date: 20130627
  Serious: Yes (Hospitalization)
  Sender: FDA-Public Use
  Company Number: JP-ROCHE-1079689

PATIENT
  Age: 71 Year
  Sex: Male
  Weight: 69 kg

DRUGS (22)
  1. XELODA [Suspect]
     Indication: COLON CANCER METASTATIC
     Dosage: It is administer/one weekly holiday medicine for two weeks.
     Route: 048
     Dates: start: 20120409, end: 20120422
  2. XELODA [Interacting]
     Indication: COLON CANCER METASTATIC
     Dosage: It is administer/one weekly holiday medicine for two weeks.
     Route: 048
     Dates: start: 20120507, end: 20120520
  3. XELODA [Interacting]
     Indication: COLON CANCER METASTATIC
     Dosage: It is administer/one weekly holiday medicine for two weeks.
     Route: 048
     Dates: start: 20120528, end: 20120610
  4. WARFARIN [Interacting]
     Indication: MITRAL VALVE INCOMPETENCE
     Route: 048
     Dates: end: 20120611
  5. ELPLAT [Suspect]
     Indication: COLON CANCER METASTATIC
     Dosage: Dosage is uncertain.
     Route: 041
     Dates: start: 20120409, end: 20120409
  6. ELPLAT [Suspect]
     Indication: COLON CANCER METASTATIC
     Dosage: Dosage is uncertain.
     Route: 041
     Dates: start: 20120507, end: 20120507
  7. ELPLAT [Suspect]
     Indication: COLON CANCER METASTATIC
     Dosage: Dosage is uncertain.
     Route: 041
     Dates: start: 20120528, end: 20120528
  8. FERROUS FUMARATE [Suspect]
     Indication: ANAEMIA
     Route: 048
  9. MEQUITAZINE [Suspect]
     Indication: PRODUCT USED FOR UNKNOWN INDICATION
     Dosage: Dosage is uncertain.
     Route: 048
  10. PURSENNID [Concomitant]
     Indication: CONSTIPATION
     Route: 048
  11. AMARYL [Concomitant]
     Indication: DIABETES MELLITUS
     Route: 048
  12. JANUVIA [Concomitant]
     Indication: DIABETES MELLITUS
     Route: 048
  13. LOXOPROFEN [Concomitant]
     Indication: ANALGESIC THERAPY
     Route: 048
     Dates: start: 20120310, end: 20120316
  14. AMLODIN [Concomitant]
     Indication: HYPERTENSION
     Route: 048
  15. NU-LOTAN [Concomitant]
     Indication: HYPERTENSION
     Route: 048
  16. DIART [Concomitant]
     Indication: HYPERTENSION
     Route: 048
  17. LANIRAPID [Concomitant]
     Indication: ATRIAL FIBRILLATION
     Route: 048
  18. HARNAL [Concomitant]
     Indication: BENIGN PROSTATIC HYPERPLASIA
     Route: 048
  19. ALOXI [Concomitant]
     Indication: PROPHYLAXIS OF NAUSEA AND VOMITING
     Dosage: Dosage is uncertain.
     Route: 041
  20. DEXAMETHASONE SODIUM PHOSPHATE [Concomitant]
     Dosage: Dosage is uncertain.
     Route: 041
  21. BIO-THREE [Concomitant]
     Dosage: Dosage is uncertain.
     Route: 048
  22. MAGLAX [Concomitant]
     Dosage: Dosage is uncertain.
     Route: 048

REACTIONS (10)
  - International normalised ratio increased [Recovering/Resolving]
  - Drug interaction [Unknown]
  - Pyrexia [Recovered/Resolved]
  - Cough [Recovered/Resolved]
  - Neuropathy peripheral [Recovered/Resolved]
  - Palmar-plantar erythrodysaesthesia syndrome [Recovered/Resolved]
  - Decreased appetite [Recovered/Resolved]
  - Nausea [Recovered/Resolved]
  - Faeces discoloured [Unknown]
  - Infectious pleural effusion [Recovered/Resolved]
